FAERS Safety Report 4465864-4 (Version None)
Quarter: 2004Q3

REPORT INFORMATION
  Report Type: 
  Country: None (occurrence: None)
  Receive Date: 20040929
  Receipt Date: 20040929
  Transmission Date: 20050211
  Serious: Yes (Other)
  Sender: FDA-Public Use
  Company Number: None

PATIENT
  Age: 51 Day
  Sex: Female
  Weight: 79.3795 kg

DRUGS (1)
  1. ZOCOR [Suspect]
     Indication: BLOOD CHOLESTEROL INCREASED
     Dosage: DAILY
     Dates: start: 20040727, end: 20040822

REACTIONS (7)
  - ACTIVITIES OF DAILY LIVING IMPAIRED [None]
  - ARTHRALGIA [None]
  - BURNING SENSATION [None]
  - DIFFICULTY IN WALKING [None]
  - MOBILITY DECREASED [None]
  - MYALGIA [None]
  - PAIN IN EXTREMITY [None]
